FAERS Safety Report 20629694 (Version 1)
Quarter: 2022Q1

REPORT INFORMATION
  Report Type: Spontaneous
  Country: GR (occurrence: None)
  Receive Date: 20220323
  Receipt Date: 20220323
  Transmission Date: 20220423
  Serious: Yes (Hospitalization)
  Sender: FDA-Public Use
  Company Number: 2022A114598

PATIENT
  Age: 8 Year
  Sex: Female
  Weight: 34 kg

DRUGS (2)
  1. SELUMETINIB [Suspect]
     Active Substance: SELUMETINIB
     Indication: Neurofibroma
     Dosage: 25 MG TWICE A DAY
     Route: 030
     Dates: start: 20200727, end: 20210901
  2. TRIPTORELIN [Suspect]
     Active Substance: TRIPTORELIN
     Route: 065
     Dates: start: 20210830

REACTIONS (3)
  - Dermatitis [Recovering/Resolving]
  - Superficial vein thrombosis [Recovering/Resolving]
  - Oedema [Recovering/Resolving]

NARRATIVE: CASE EVENT DATE: 20210901
